FAERS Safety Report 16096877 (Version 2)
Quarter: 2019Q1

REPORT INFORMATION
  Report Type: Report from Study
  Country: US (occurrence: US)
  Receive Date: 20190320
  Receipt Date: 20190326
  Transmission Date: 20190418
  Serious: Yes (Other)
  Sender: FDA-Public Use
  Company Number: US-GILEAD-2019-0396817

PATIENT
  Age: 71 Year
  Sex: Female

DRUGS (2)
  1. LASIX + K [Concomitant]
     Active Substance: FUROSEMIDE\POTASSIUM CHLORIDE
  2. AMBRISENTAN [Suspect]
     Active Substance: AMBRISENTAN
     Indication: PRODUCT USED FOR UNKNOWN INDICATION
     Dosage: 5 MG, QD
     Route: 065
     Dates: start: 201702

REACTIONS (7)
  - Blood sodium increased [Not Recovered/Not Resolved]
  - Anaemia [Not Recovered/Not Resolved]
  - Traumatic haemorrhage [Unknown]
  - Haemoglobin decreased [Unknown]
  - Traumatic shock [Unknown]
  - Syncope [Unknown]
  - Skin laceration [Unknown]
